FAERS Safety Report 18785087 (Version 2)
Quarter: 2021Q1

REPORT INFORMATION
  Report Type: Report from Study
  Country: US (occurrence: US)
  Receive Date: 20210125
  Receipt Date: 20210203
  Transmission Date: 20210419
  Serious: Yes (Life-Threatening)
  Sender: FDA-Public Use
  Company Number: US-PFIZER INC-2021042277

PATIENT
  Age: 15 Year
  Sex: Male

DRUGS (4)
  1. TETRACYCLINE [Concomitant]
     Active Substance: TETRACYCLINE
     Dosage: UNK
  2. BACTRIM [Suspect]
     Active Substance: SULFAMETHOXAZOLE\TRIMETHOPRIM
     Indication: ANTIFUNGAL PROPHYLAXIS
     Dosage: UNK
     Route: 048
  3. BACTRIM [Suspect]
     Active Substance: SULFAMETHOXAZOLE\TRIMETHOPRIM
     Indication: PNEUMOCYSTIS JIROVECII PNEUMONIA
  4. ZIDOVUDINE. [Concomitant]
     Active Substance: ZIDOVUDINE
     Dosage: UNK

REACTIONS (3)
  - Rash erythematous [Recovered/Resolved]
  - Hypersensitivity [Unknown]
  - Swelling [Unknown]
